FAERS Safety Report 8840279 (Version 1)
Quarter: 2012Q4

REPORT INFORMATION
  Report Type: 
  Country: US (occurrence: US)
  Receive Date: 20121015
  Receipt Date: 20121015
  Transmission Date: 20130627
  Serious: Yes (Other)
  Sender: FDA-Public Use
  Company Number: US-009507513-1210USA002303

PATIENT
  Sex: Male

DRUGS (3)
  1. REBETOL [Suspect]
     Indication: HEPATITIS C
     Dosage: UNK
     Dates: start: 20080101, end: 20090101
  2. [THERAPY UNSPECIFIED] [Suspect]
     Indication: HEPATITIS C
     Dosage: UNK
     Dates: start: 20080101, end: 20090101
  3. VICODIN [Concomitant]
     Dosage: UNK

REACTIONS (2)
  - Weight decreased [Unknown]
  - Drug ineffective [Unknown]
